FAERS Safety Report 20386477 (Version 1)
Quarter: 2022Q1

REPORT INFORMATION
  Report Type: Spontaneous
  Country: US (occurrence: US)
  Receive Date: 20220127
  Receipt Date: 20220127
  Transmission Date: 20220423
  Serious: No
  Sender: FDA-Public Use
  Company Number: US-ALLERGAN-2142571US

PATIENT
  Sex: Male
  Weight: 108.84 kg

DRUGS (1)
  1. BOTOX [Suspect]
     Active Substance: ONABOTULINUMTOXINA
     Indication: Migraine
     Dosage: 160 UNITS, SINGLE
     Dates: start: 2021, end: 2021

REACTIONS (1)
  - Drug ineffective [Unknown]
